FAERS Safety Report 12701185 (Version 1)
Quarter: 2016Q3

REPORT INFORMATION
  Report Type: Spontaneous
  Country: BR (occurrence: BR)
  Receive Date: 20160831
  Receipt Date: 20160831
  Transmission Date: 20161109
  Serious: Yes (Other)
  Sender: FDA-Public Use
  Company Number: BR-ROCHE-1820505

PATIENT
  Sex: Female

DRUGS (7)
  1. HYDROCHLOROTHIAZIDE. [Concomitant]
     Active Substance: HYDROCHLOROTHIAZIDE
     Route: 065
  2. PROPRANOLOL [Concomitant]
     Active Substance: PROPRANOLOL\PROPRANOLOL HYDROCHLORIDE
     Route: 065
  3. FLUOXETINE [Concomitant]
     Active Substance: FLUOXETINE HYDROCHLORIDE
     Route: 065
  4. METFORMIN [Concomitant]
     Active Substance: METFORMIN HYDROCHLORIDE
     Route: 065
  5. CAPTOPRIL. [Concomitant]
     Active Substance: CAPTOPRIL
     Route: 065
  6. TAMIFLU [Suspect]
     Active Substance: OSELTAMIVIR PHOSPHATE
     Indication: INFLUENZA
     Route: 065
  7. ACETYLSALICYLIC ACID [Concomitant]
     Active Substance: ASPIRIN
     Route: 065

REACTIONS (12)
  - Delirium [Unknown]
  - Erythema [Unknown]
  - Skin lesion [Unknown]
  - Oedema [Unknown]
  - Neoplasm [Unknown]
  - Rash [Unknown]
  - Urticaria [Unknown]
  - Pyrexia [Unknown]
  - Dermatitis allergic [Unknown]
  - Pruritus [Unknown]
  - Feeling hot [Unknown]
  - Drug dispensing error [Unknown]
